FAERS Safety Report 4889117-5 (Version None)
Quarter: 2005Q4

REPORT INFORMATION
  Report Type: 
  Country: None (occurrence: None)
  Receive Date: 20051215
  Receipt Date: 20041216
  Transmission Date: 20060501
  Serious: Yes (Hospitalization, Other)
  Sender: FDA-Public Use
  Company Number: 2004094048

PATIENT
  Age: 73 Year
  Sex: Female
  Weight: 54.4316 kg

DRUGS (4)
  1. BEXTRA [Suspect]
     Indication: HIP FRACTURE
     Dosage: 20 MG, ORAL
     Route: 048
     Dates: start: 20031001, end: 20031201
  2. VERAPAMIL [Concomitant]
  3. METOPROLOL SUCCINATE [Concomitant]
  4. DIPHENYDRAMINE HYDROCHLORIDE (DIPHENYDRAMINE HYDROCHLORIDE) [Concomitant]

REACTIONS (1)
  - ATRIAL FLUTTER [None]
